FAERS Safety Report 10976891 (Version 4)
Quarter: 2016Q4

REPORT INFORMATION
  Report Type: Spontaneous
  Country: CA (occurrence: CA)
  Receive Date: 20150401
  Receipt Date: 20161027
  Transmission Date: 20170206
  Serious: Yes (Other)
  Sender: FDA-Public Use
  Company Number: CA-ROCHE-1559114

PATIENT
  Age: 45 Year
  Sex: Female
  Weight: 80 kg

DRUGS (11)
  1. NASONEX [Concomitant]
     Active Substance: MOMETASONE FUROATE
  2. VENTOLIN [Concomitant]
     Active Substance: ALBUTEROL SULFATE
  3. PREDNISONE. [Concomitant]
     Active Substance: PREDNISONE
     Route: 065
  4. SPIRIVA [Concomitant]
     Active Substance: TIOTROPIUM BROMIDE MONOHYDRATE
  5. SYMBICORT [Concomitant]
     Active Substance: BUDESONIDE\FORMOTEROL FUMARATE DIHYDRATE
  6. PULMICORT TURBUHALER [Concomitant]
     Active Substance: BUDESONIDE
  7. ADVAIR HFA [Concomitant]
     Active Substance: FLUTICASONE PROPIONATE\SALMETEROL XINAFOATE
  8. XOLAIR [Suspect]
     Active Substance: OMALIZUMAB
     Indication: ASTHMA
     Dosage: DOSE INCREASED TO 300MG EVERY TWO WEEKS ON AN UNKNOWN DATE.
     Route: 058
     Dates: start: 20080625
  9. REACTINE (CANADA) [Concomitant]
     Active Substance: CETIRIZINE HYDROCHLORIDE
  10. SINGULAIR [Concomitant]
     Active Substance: MONTELUKAST SODIUM
  11. ZANTAC [Concomitant]
     Active Substance: RANITIDINE HYDROCHLORIDE

REACTIONS (11)
  - Blood immunoglobulin E increased [Unknown]
  - Asthma [Unknown]
  - Weight increased [Unknown]
  - General physical health deterioration [Unknown]
  - Lower respiratory tract congestion [Unknown]
  - Euphoric mood [Unknown]
  - Drug ineffective [Unknown]
  - Eosinophil count increased [Unknown]
  - Sputum discoloured [Unknown]
  - Sinus congestion [Unknown]
  - Malaise [Unknown]

NARRATIVE: CASE EVENT DATE: 20150421
